FAERS Safety Report 10066025 (Version 1)
Quarter: 2014Q2

REPORT INFORMATION
  Report Type: Spontaneous
  Country: US (occurrence: US)
  Receive Date: 20140408
  Receipt Date: 20140408
  Transmission Date: 20141212
  Serious: No
  Sender: FDA-Public Use
  Company Number: US-ASTELLAS-2014US001203

PATIENT
  Age: 63 Year
  Sex: Female

DRUGS (2)
  1. MYRBETRIQ [Suspect]
     Indication: HYPERTONIC BLADDER
     Dosage: 25 MG, TOTAL DOSE
     Route: 065
     Dates: start: 20140120, end: 20140120
  2. PROVIGIL [Concomitant]
     Indication: SOMNOLENCE
     Dosage: UNK
     Route: 065

REACTIONS (1)
  - Fatigue [Unknown]
